FAERS Safety Report 8440425-0 (Version None)
Quarter: 2012Q2

REPORT INFORMATION
  Report Type: 
  Country: None (occurrence: None)
  Receive Date: 20120615
  Receipt Date: 20120612
  Transmission Date: 20120825
  Serious: Yes (Hospitalization)
  Sender: FDA-Public Use
  Company Number: DE-GILEAD-2012-0056611

PATIENT
  Sex: Female

DRUGS (3)
  1. TORSEMIDE [Concomitant]
     Dosage: 15MG PER DAY
     Route: 065
  2. MARCUMAR [Concomitant]
     Route: 065
  3. AMBRISENTAN [Suspect]
     Indication: PULMONARY HYPERTENSION
     Dosage: 5 MG, UNK
     Route: 048
     Dates: start: 20120501, end: 20120507

REACTIONS (4)
  - DEHYDRATION [None]
  - RENAL FAILURE [None]
  - VOMITING [None]
  - NAUSEA [None]
